FAERS Safety Report 4359242-6 (Version None)
Quarter: 2004Q2

REPORT INFORMATION
  Report Type: 
  Country: None (occurrence: None)
  Receive Date: 20040512
  Receipt Date: 20040427
  Transmission Date: 20050107
  Serious: Yes (Other)
  Sender: FDA-Public Use
  Company Number: 2004-0007015

PATIENT
  Age: 32 Year
  Sex: Female

DRUGS (3)
  1. VIREAD [Suspect]
     Indication: HIV INFECTION
     Dosage: 300 MG, 1 IN 1 D, ORAL
     Route: 048
     Dates: start: 20021021
  2. LAMIVUDINE (LAMIVUDINE) [Concomitant]
  3. KALETRA [Concomitant]

REACTIONS (5)
  - ABORTION INDUCED [None]
  - ABORTION MISSED [None]
  - BLIGHTED OVUM [None]
  - COMPLICATIONS OF MATERNAL EXPOSURE TO THERAPEUTIC DRUGS [None]
  - MATERNAL DRUGS AFFECTING FOETUS [None]
